FAERS Safety Report 5395024-4 (Version None)
Quarter: 2007Q3

REPORT INFORMATION
  Report Type: 
  Country: None (occurrence: None)
  Receive Date: 20070724
  Receipt Date: 20070719
  Transmission Date: 20080115
  Serious: Yes (Hospitalization)
  Sender: FDA-Public Use
  Company Number: PL-JNJFOC-20070605272

PATIENT
  Sex: Male
  Weight: 65.3 kg

DRUGS (3)
  1. BLINDED; PALIPERIDONE [Suspect]
     Route: 048
  2. BLINDED; PALIPERIDONE [Suspect]
     Indication: BIPOLAR I DISORDER
     Route: 048
  3. PLACEBO [Suspect]
     Indication: BIPOLAR I DISORDER
     Route: 048

REACTIONS (1)
  - MANIA [None]
